FAERS Safety Report 11812804 (Version 2)
Quarter: 2015Q4

REPORT INFORMATION
  Report Type: Spontaneous
  Country: US (occurrence: US)
  Receive Date: 20151209
  Receipt Date: 20151209
  Transmission Date: 20160305
  Serious: Yes (Hospitalization)
  Sender: FDA-Public Use
  Company Number: US-HOSPIRA-2940247

PATIENT
  Age: 78 Year
  Sex: Female
  Weight: 112.04 kg

DRUGS (12)
  1. BUMETANIDE. [Suspect]
     Active Substance: BUMETANIDE
     Indication: DIURETIC THERAPY
     Dosage: 3 MG/HR
     Route: 041
  2. SPIRONOLACTONE. [Suspect]
     Active Substance: SPIRONOLACTONE
     Indication: DIURETIC THERAPY
     Dosage: DAILY
     Route: 048
     Dates: start: 20150310
  3. WARFARIN [Concomitant]
     Active Substance: WARFARIN
     Indication: ANTICOAGULANT THERAPY
     Dosage: DAILY
     Route: 048
     Dates: start: 20150426
  4. METOLAZONE. [Suspect]
     Active Substance: METOLAZONE
     Indication: DIURETIC THERAPY
  5. ALLOPURINOL. [Concomitant]
     Active Substance: ALLOPURINOL
     Indication: GOUT
     Dosage: DAILY
     Route: 048
     Dates: start: 20141009
  6. MILRINONE [Concomitant]
     Active Substance: MILRINONE
     Indication: PRODUCT USED FOR UNKNOWN INDICATION
  7. MAGNESIUM OXIDE. [Concomitant]
     Active Substance: MAGNESIUM OXIDE
     Indication: MINERAL SUPPLEMENTATION
     Dosage: DAILY
     Route: 048
     Dates: start: 20141221
  8. BENADRYL [Concomitant]
     Active Substance: DIPHENHYDRAMINE HYDROCHLORIDE
     Indication: PRURITUS
     Route: 048
     Dates: start: 20150510
  9. VYNDAQEL [Concomitant]
     Active Substance: TAFAMIDIS MEGLUMINE
     Indication: CARDIOMYOPATHY
     Dosage: 1X/DAY
     Route: 048
     Dates: start: 20150126
  10. MOMETASONE [Concomitant]
     Active Substance: MOMETASONE
     Indication: PRURITUS
     Dosage: SPREAD THIN LAYER
     Route: 061
     Dates: start: 20141024
  11. CALCITROL                          /00508501/ [Concomitant]
     Active Substance: CALCIUM CARBONATE\ERGOCALCIFEROL\RETINOL
     Indication: VITAMIN SUPPLEMENTATION
     Route: 048
     Dates: start: 20150526
  12. TORSEMIDE. [Suspect]
     Active Substance: TORSEMIDE
     Indication: DIURETIC THERAPY
     Route: 048
     Dates: start: 20150519

REACTIONS (1)
  - Acute kidney injury [Not Recovered/Not Resolved]
